FAERS Safety Report 4946169-1 (Version None)
Quarter: 2006Q1

REPORT INFORMATION
  Report Type: 
  Country: None (occurrence: None)
  Receive Date: 20060118
  Receipt Date: 20050613
  Transmission Date: 20060701
  Serious: Yes (Death, Hospitalization, Other)
  Sender: FDA-Public Use
  Company Number: US-JNJFOC-20050505309

PATIENT
  Age: 55 Year
  Sex: Female
  Weight: 62.5964 kg

DRUGS (3)
  1. DOXIL [Suspect]
     Indication: ADENOCARCINOMA
     Dosage: 30 MG/M2, INTRAVENOUS
     Route: 042
     Dates: start: 20050510
  2. TOTAL PARENTERAL NUTRITION (POLYVINYL ALCOHOL) [Concomitant]
  3. MORPHINE [Concomitant]

REACTIONS (2)
  - ADENOCARCINOMA [None]
  - INJECTION SITE INFLAMMATION [None]
